FAERS Safety Report 8320094-0 (Version None)
Quarter: 2012Q2

REPORT INFORMATION
  Report Type: 
  Country: None (occurrence: None)
  Receive Date: 20120429
  Receipt Date: 20120424
  Transmission Date: 20120825
  Serious: Yes (Other)
  Sender: FDA-Public Use
  Company Number: US-VERTEX PHARMACEUTICALS INC.-AE-2012-003731

PATIENT
  Sex: Male
  Weight: 90.8 kg

DRUGS (16)
  1. PEGASYS [Concomitant]
     Indication: HEPATITIS C
     Route: 058
  2. TRIAMCINOLONE [Concomitant]
  3. MAGNESIUM [Concomitant]
  4. OMEPRAZOLE [Concomitant]
  5. BENEFIBER [Concomitant]
  6. SYNTHROID [Concomitant]
  7. FLOVENT [Concomitant]
  8. FLONASE [Concomitant]
  9. EPOGEN [Concomitant]
  10. RIBAVIRIN [Concomitant]
     Indication: HEPATITIS C
     Route: 048
  11. PRILOSEC [Concomitant]
  12. IBUPROFEN [Concomitant]
  13. ZYRTEC [Concomitant]
  14. SYNTHROID [Concomitant]
  15. CALCIUM [Concomitant]
  16. INCIVEK [Suspect]
     Indication: HEPATITIS C
     Route: 048
     Dates: end: 20111212

REACTIONS (10)
  - ELECTROLYTE IMBALANCE [None]
  - RASH [None]
  - PROCTALGIA [None]
  - ADRENAL INSUFFICIENCY [None]
  - THROMBOCYTOPENIA [None]
  - SEPSIS [None]
  - URINARY TRACT INFECTION [None]
  - RECTAL HAEMORRHAGE [None]
  - ANAEMIA [None]
  - EPISTAXIS [None]
